FAERS Safety Report 8136810-7 (Version None)
Quarter: 2012Q1

REPORT INFORMATION
  Report Type: 
  Country: None (occurrence: None)
  Receive Date: 20120214
  Receipt Date: 20120203
  Transmission Date: 20120608
  Serious: Yes (Hospitalization)
  Sender: FDA-Public Use
  Company Number: US-CELGENEUS-163-21880-12020650

PATIENT
  Sex: Male

DRUGS (4)
  1. COUMADIN [Concomitant]
     Route: 065
  2. REVLIMID [Suspect]
     Dosage: 25 MILLIGRAM
     Route: 048
     Dates: start: 20090101
  3. ASPIRIN [Concomitant]
     Route: 065
  4. ZOMETA [Concomitant]
     Route: 065

REACTIONS (2)
  - PANCYTOPENIA [None]
  - THROMBOTIC THROMBOCYTOPENIC PURPURA [None]
